FAERS Safety Report 16638187 (Version 1)
Quarter: 2019Q3

REPORT INFORMATION
  Report Type: Spontaneous
  Country: AU (occurrence: AU)
  Receive Date: 20190726
  Receipt Date: 20190726
  Transmission Date: 20191004
  Serious: Yes (Other)
  Sender: FDA-Public Use
  Company Number: AU-IPSEN BIOPHARMACEUTICALS, INC.-2019-11125

PATIENT
  Age: 52 Year
  Sex: Female

DRUGS (3)
  1. DYSPORT [Suspect]
     Active Substance: ABOBOTULINUMTOXINA
     Indication: PELVIC FLOOR DYSSYNERGIA
  2. DYSPORT [Suspect]
     Active Substance: ABOBOTULINUMTOXINA
     Indication: PUDENDAL CANAL SYNDROME
     Dosage: 300 IU
     Route: 030
  3. DYSPORT [Suspect]
     Active Substance: ABOBOTULINUMTOXINA
     Indication: OFF LABEL USE

REACTIONS (6)
  - Neurogenic bladder [Unknown]
  - Dyschezia [Unknown]
  - Feeling of body temperature change [Recovering/Resolving]
  - Off label use [Unknown]
  - Dysuria [Unknown]
  - Pelvic discomfort [Unknown]
